APPROVED DRUG PRODUCT: NADOLOL
Active Ingredient: NADOLOL
Strength: 40MG
Dosage Form/Route: TABLET;ORAL
Application: A207761 | Product #002 | TE Code: AB
Applicant: ZYDUS PHARMACEUTICALS USA INC
Approved: Jul 28, 2017 | RLD: No | RS: No | Type: RX